FAERS Safety Report 4990115-1 (Version None)
Quarter: 2006Q2

REPORT INFORMATION
  Report Type: 
  Country: None (occurrence: None)
  Receive Date: 20060501
  Receipt Date: 20060501
  Transmission Date: 20061013
  Serious: Yes (Life-Threatening, Hospitalization, Disabling)
  Sender: FDA-Public Use
  Company Number: None

PATIENT
  Sex: Female
  Weight: 65.7716 kg

DRUGS (3)
  1. GEMZAR [Suspect]
     Indication: PANCREATIC CARCINOMA
     Dosage: 1800MG IV D1, 8 Q 21 D
     Route: 042
     Dates: start: 20040824, end: 20050517
  2. ETOPOSIDE [Suspect]
     Indication: PANCREATIC CARCINOMA
     Dosage: 140 MG IV D8,9,10 Q 21 D
     Route: 042
     Dates: start: 20040831, end: 20050519
  3. TARCEVA [Concomitant]

REACTIONS (5)
  - ACUTE MYELOID LEUKAEMIA [None]
  - ASTHENIA [None]
  - HEADACHE [None]
  - NEOPLASM PROGRESSION [None]
  - PYREXIA [None]
